FAERS Safety Report 6505629-2 (Version None)
Quarter: 2009Q4

REPORT INFORMATION
  Report Type: 
  Country: None (occurrence: None)
  Receive Date: 20091218
  Receipt Date: 20091209
  Transmission Date: 20100525
  Serious: Yes (Death)
  Sender: FDA-Public Use
  Company Number: GXKR2009TN13285

PATIENT
  Age: 18 Year
  Sex: Female

DRUGS (3)
  1. SUCCINYLCHOLINE CHLORIDE (NGX) [Suspect]
     Dosage: 60 MG, UNK
     Route: 042
  2. INSECTICIDES AND REPELLENTS [Interacting]
     Route: 065
  3. PROPOFOL [Concomitant]
     Dosage: 150 MG, UNK
     Route: 065

REACTIONS (8)
  - BRAIN DEATH [None]
  - CARDIAC ARREST [None]
  - DRUG INTERACTION [None]
  - ENDOTRACHEAL INTUBATION [None]
  - HYPOXIA [None]
  - MECHANICAL VENTILATION [None]
  - RESUSCITATION [None]
  - TRISMUS [None]
